FAERS Safety Report 7469134-1 (Version None)
Quarter: 2011Q2

REPORT INFORMATION
  Report Type: 
  Country: None (occurrence: None)
  Receive Date: 20110510
  Receipt Date: 20110427
  Transmission Date: 20111010
  Serious: Yes (Other)
  Sender: FDA-Public Use
  Company Number: US-ELI_LILLY_AND_COMPANY-US201105000115

PATIENT
  Sex: Male

DRUGS (1)
  1. CYMBALTA [Suspect]
     Indication: PAIN
     Dosage: UNK
     Dates: start: 20100101

REACTIONS (2)
  - HEPATITIS [None]
  - HEPATIC CIRRHOSIS [None]
